FAERS Safety Report 4633887-8 (Version None)
Quarter: 2005Q1

REPORT INFORMATION
  Report Type: 
  Country: None (occurrence: None)
  Receive Date: 20050325
  Receipt Date: 20041229
  Transmission Date: 20050727
  Serious: No
  Sender: FDA-Public Use
  Company Number: USA041287156

PATIENT
  Age: 62 Year
  Sex: Female

DRUGS (1)
  1. FORTEO [Suspect]
     Dates: start: 20041018

REACTIONS (4)
  - ANOREXIA [None]
  - ASTHENIA [None]
  - CONSTIPATION [None]
  - HEADACHE [None]
